FAERS Safety Report 4490993-9 (Version None)
Quarter: 2004Q4

REPORT INFORMATION
  Report Type: 
  Country: None (occurrence: None)
  Receive Date: 20041027
  Receipt Date: 20041019
  Transmission Date: 20050328
  Serious: Yes (Death, Hospitalization)
  Sender: FDA-Public Use
  Company Number: 2004-05-0636

PATIENT
  Age: 40 Year
  Sex: Female
  Weight: 60 kg

DRUGS (5)
  1. INTRON A [Suspect]
     Indication: HEPATITIS C
     Dosage: 6 MU QD-TIW INTRAMUSCULAR; 6 MU TIW INTRAMUSCULAR
     Route: 030
     Dates: start: 20030310, end: 20030406
  2. INTRON A [Suspect]
     Indication: HEPATITIS C
     Dosage: 6 MU QD-TIW INTRAMUSCULAR; 6 MU TIW INTRAMUSCULAR
     Route: 030
     Dates: start: 20030310, end: 20040412
  3. INTRON A [Suspect]
     Indication: HEPATITIS C
     Dosage: 6 MU QD-TIW INTRAMUSCULAR; 6 MU TIW INTRAMUSCULAR
     Route: 030
     Dates: start: 20030415, end: 20040412
  4. REBETOL [Suspect]
     Indication: HEPATITIS C
     Dosage: 800 MG QD ORAL
     Route: 048
     Dates: start: 20030310, end: 20030825
  5. CLARITIN [Concomitant]

REACTIONS (10)
  - ALOPECIA [None]
  - BRONCHITIS [None]
  - CIRCULATORY COLLAPSE [None]
  - DIZZINESS [None]
  - FOAMING AT MOUTH [None]
  - GAZE PALSY [None]
  - NASOPHARYNGITIS [None]
  - PULMONARY OEDEMA [None]
  - RUPTURED CEREBRAL ANEURYSM [None]
  - SUBARACHNOID HAEMORRHAGE [None]
